FAERS Safety Report 12663033 (Version 1)
Quarter: 2016Q3

REPORT INFORMATION
  Report Type: Spontaneous
  Country: US (occurrence: None)
  Receive Date: 20160817
  Receipt Date: 20160817
  Transmission Date: 20161109
  Serious: Yes (Other)
  Sender: FDA-Public Use
  Company Number: None

PATIENT
  Age: 45 Year
  Sex: Female
  Weight: 54.43 kg

DRUGS (13)
  1. B6 [Concomitant]
     Active Substance: PYRIDOXINE HYDROCHLORIDE
  2. CALCIUM [Concomitant]
     Active Substance: CALCIUM
  3. FLAX SEED [Concomitant]
     Active Substance: FLAX SEED
  4. MIRALAX [Concomitant]
     Active Substance: POLYETHYLENE GLYCOL 3350
  5. MULTI-VITAMIN [Concomitant]
     Active Substance: .ALPHA.-TOCOPHEROL ACETATE, DL-\ASCORBIC ACID\CYANOCOBALAMIN\FLUORIDE ION\FOLIC ACID\NIACIN\PYRIDOXINE\RIBOFLAVIN\THIAMINE\VITAMIN A\VITAMIN D
  6. MAGNESIUM [Concomitant]
     Active Substance: MAGNESIUM
  7. OMEPRAZOLE DR 20 MG CAPSULE, 20 MG GLENMARK PHARMACEUTICALS [Suspect]
     Active Substance: OMEPRAZOLE
     Indication: GASTROOESOPHAGEAL REFLUX DISEASE
     Dosage: 1 CAPSULE(S) IN THE MORNING TAKEN BY MOUTH
     Route: 048
     Dates: start: 20160815, end: 20160816
  8. TRAMADOL. [Concomitant]
     Active Substance: TRAMADOL
  9. TRINTELLIX [Concomitant]
     Active Substance: VORTIOXETINE HYDROBROMIDE
  10. GROUND [Concomitant]
  11. POTASSIUM [Concomitant]
     Active Substance: POTASSIUM
  12. METROGEL [Concomitant]
     Active Substance: METRONIDAZOLE
  13. BIOTIN [Concomitant]
     Active Substance: BIOTIN

REACTIONS (3)
  - Product substitution issue [None]
  - Drug dispensing error [None]
  - Abdominal pain upper [None]

NARRATIVE: CASE EVENT DATE: 20160815
